FAERS Safety Report 5215257-7 (Version None)
Quarter: 2006Q4

REPORT INFORMATION
  Report Type: 
  Country: None (occurrence: None)
  Receive Date: 20061122
  Receipt Date: 20060316
  Transmission Date: 20070319
  Serious: Yes (Life-Threatening, Hospitalization, Other)
  Sender: FDA-Public Use
  Company Number: HQWYE374017MAR06

PATIENT
  Age: 14 Year
  Sex: Male
  Weight: 44 kg

DRUGS (4)
  1. ZOSYN [Suspect]
     Indication: CONDITION AGGRAVATED
     Dosage: 3.375 G 1X PER 8 HR, INTRAVENOUS
     Route: 042
     Dates: start: 20060310, end: 20060310
  2. ZOSYN [Suspect]
     Indication: CYSTIC FIBROSIS
     Dosage: 3.375 G 1X PER 8 HR, INTRAVENOUS
     Route: 042
     Dates: start: 20060310, end: 20060310
  3. TOBRAMYCIN [Concomitant]
  4. BENADRYL [Concomitant]

REACTIONS (1)
  - ANAPHYLACTIC REACTION [None]
